FAERS Safety Report 18821920 (Version 1)
Quarter: 2021Q1

REPORT INFORMATION
  Report Type: Spontaneous
  Country: US (occurrence: US)
  Receive Date: 20210202
  Receipt Date: 20210202
  Transmission Date: 20210419
  Serious: Yes (Other)
  Sender: FDA-Public Use
  Company Number: US-IPSEN BIOPHARMACEUTICALS, INC.-2021-02618

PATIENT
  Age: 39 Year
  Sex: Female

DRUGS (8)
  1. DYSPORT [Suspect]
     Active Substance: ABOBOTULINUMTOXINA
     Indication: SKIN WRINKLING
     Dosage: 47 UNITS (FRONTALIS?4 UNITS, CROWS?12 UNITS PER SIDE, DOA?2 UNITS PER SIDE, GLABELLA?15 UNITS)
     Route: 030
     Dates: start: 20210122, end: 20210122
  2. UBRELVY [Concomitant]
     Active Substance: UBROGEPANT
  3. DYSPORT [Suspect]
     Active Substance: ABOBOTULINUMTOXINA
     Indication: SKIN WRINKLING
  4. DYSPORT [Suspect]
     Active Substance: ABOBOTULINUMTOXINA
     Indication: OFF LABEL USE
  5. AJOVY [Concomitant]
     Active Substance: FREMANEZUMAB-VFRM
  6. DYSPORT [Suspect]
     Active Substance: ABOBOTULINUMTOXINA
     Indication: SKIN WRINKLING
  7. DYSPORT [Suspect]
     Active Substance: ABOBOTULINUMTOXINA
     Indication: SKIN WRINKLING
  8. TRAZODONE [Concomitant]
     Active Substance: TRAZODONE HYDROCHLORIDE

REACTIONS (6)
  - Facial pain [Not Recovered/Not Resolved]
  - Off label use [Unknown]
  - Facial paralysis [Not Recovered/Not Resolved]
  - Swelling face [Not Recovered/Not Resolved]
  - Product storage error [Unknown]
  - Salivary gland enlargement [Not Recovered/Not Resolved]

NARRATIVE: CASE EVENT DATE: 20210122
